FAERS Safety Report 4367641-1 (Version None)
Quarter: 2004Q2

REPORT INFORMATION
  Report Type: 
  Country: None (occurrence: None)
  Receive Date: 20040601
  Receipt Date: 20040227
  Transmission Date: 20050107
  Serious: Yes (Hospitalization)
  Sender: FDA-Public Use
  Company Number: US-MERCK-0403USA00007

PATIENT
  Age: 71 Year
  Sex: Female
  Weight: 84 kg

DRUGS (11)
  1. TYLENOL [Concomitant]
     Route: 065
  2. DARVOCET-N 100 [Concomitant]
     Route: 065
  3. XANAX [Concomitant]
     Route: 065
     Dates: start: 19890101
  4. XANAX [Concomitant]
     Route: 065
     Dates: start: 19890101
  5. XALATAN [Concomitant]
     Route: 065
  6. SYNTHROID [Concomitant]
     Route: 065
  7. VIOXX [Suspect]
     Indication: ARTHRALGIA
     Route: 048
     Dates: start: 20020212, end: 20020501
  8. VIOXX [Suspect]
     Indication: OSTEOARTHRITIS
     Route: 048
     Dates: start: 20020212, end: 20020501
  9. ZOLOFT [Concomitant]
     Route: 065
     Dates: start: 20020401, end: 20020401
  10. ZOLOFT [Concomitant]
     Route: 065
     Dates: start: 20000228, end: 20020401
  11. ZOLOFT [Concomitant]
     Route: 065
     Dates: start: 20020401

REACTIONS (35)
  - ANXIETY [None]
  - AORTIC ANEURYSM [None]
  - ARTHRALGIA [None]
  - BLOOD CHOLESTEROL INCREASED [None]
  - BRONCHITIS [None]
  - BURSITIS [None]
  - CELLULITIS [None]
  - CEREBRAL ATROPHY [None]
  - CEREBRAL INFARCTION [None]
  - CEREBROVASCULAR ACCIDENT [None]
  - CHRONIC OBSTRUCTIVE AIRWAYS DISEASE [None]
  - CONDITION AGGRAVATED [None]
  - CONGENITAL ATRIAL SEPTAL DEFECT [None]
  - DEPRESSION [None]
  - DILATATION ATRIAL [None]
  - DRUG INEFFECTIVE [None]
  - ELECTROCARDIOGRAM POOR R-WAVE PROGRESSION [None]
  - ELECTROCARDIOGRAM ST SEGMENT DEPRESSION [None]
  - FEAR [None]
  - HYPERTENSION [None]
  - INTERVERTEBRAL DISC PROTRUSION [None]
  - JOINT SWELLING [None]
  - LOW DENSITY LIPOPROTEIN INCREASED [None]
  - MEAN CELL VOLUME INCREASED [None]
  - NERVOUSNESS [None]
  - OEDEMA PERIPHERAL [None]
  - PANIC DISORDER WITH AGORAPHOBIA [None]
  - RADICULITIS LUMBOSACRAL [None]
  - RHONCHI [None]
  - SKIN LACERATION [None]
  - SKIN ULCER [None]
  - SPINAL COLUMN STENOSIS [None]
  - SPINAL OSTEOARTHRITIS [None]
  - SPONDYLOLISTHESIS ACQUIRED [None]
  - WHEEZING [None]
